FAERS Safety Report 19000152 (Version 1)
Quarter: 2021Q1

REPORT INFORMATION
  Report Type: Spontaneous
  Country: US (occurrence: US)
  Receive Date: 20210312
  Receipt Date: 20210312
  Transmission Date: 20210420
  Serious: Yes (Other)
  Sender: FDA-Public Use
  Company Number: US-BRISTOL-MYERS SQUIBB COMPANY-BMS-2021-021417

PATIENT
  Sex: Female
  Weight: 63.49 kg

DRUGS (3)
  1. COUMADIN [Suspect]
     Active Substance: WARFARIN SODIUM
     Indication: CEREBROVASCULAR ACCIDENT
     Dosage: 2.5 MILLIGRAM, QD
     Route: 048
     Dates: start: 20040802
  2. COUMADIN [Suspect]
     Active Substance: WARFARIN SODIUM
     Dosage: 10 MILLIGRAM, QD
     Route: 048
  3. COUMADIN [Suspect]
     Active Substance: WARFARIN SODIUM
     Dosage: 7.5 MILLIGRAM, QD
     Route: 048

REACTIONS (3)
  - Arthropathy [Unknown]
  - Therapeutic product effect increased [Unknown]
  - Cerebrovascular accident [Unknown]
